FAERS Safety Report 16885890 (Version 4)
Quarter: 2019Q4

REPORT INFORMATION
  Report Type: Spontaneous
  Country: TR (occurrence: TR)
  Receive Date: 20191004
  Receipt Date: 20191030
  Transmission Date: 20200122
  Serious: Yes (Other)
  Sender: FDA-Public Use
  Company Number: TR-TAKEDA-2019TUS055178

PATIENT
  Age: 65 Year
  Sex: Female

DRUGS (3)
  1. REVLIMID [Concomitant]
     Active Substance: LENALIDOMIDE
     Indication: COLITIS ULCERATIVE
     Dosage: 25 MILLIGRAM, QD
     Route: 048
     Dates: start: 201806
  2. KORDEXA [Concomitant]
     Active Substance: DEXAMETHASONE
     Indication: COLITIS ULCERATIVE
     Dosage: 40 MILLIGRAM, 1/WEEK
     Route: 048
     Dates: start: 201806
  3. NINLARO [Suspect]
     Active Substance: IXAZOMIB CITRATE
     Indication: PLASMA CELL MYELOMA
     Dosage: 4 MILLIGRAM, 1/WEEK
     Route: 048
     Dates: start: 201806

REACTIONS (1)
  - Herpes zoster [Recovered/Resolved]
